FAERS Safety Report 20348661 (Version 1)
Quarter: 2022Q1

REPORT INFORMATION
  Report Type: Spontaneous
  Country: US (occurrence: None)
  Receive Date: 20220119
  Receipt Date: 20220119
  Transmission Date: 20220423
  Serious: No
  Sender: FDA-Public Use
  Company Number: US-MDD US Operations-MDD202104-000705

PATIENT
  Age: 6 Decade
  Sex: Female

DRUGS (1)
  1. MYOBLOC [Suspect]
     Active Substance: RIMABOTULINUMTOXINB
     Indication: Torticollis
     Dates: start: 20210304

REACTIONS (2)
  - Tremor [Unknown]
  - Head titubation [Unknown]

NARRATIVE: CASE EVENT DATE: 20210304
